FAERS Safety Report 16463902 (Version 1)
Quarter: 2019Q2

REPORT INFORMATION
  Report Type: Spontaneous
  Country: US (occurrence: US)
  Receive Date: 20190513
  Receipt Date: 20190513
  Transmission Date: 20190711
  Serious: No
  Sender: FDA-Public Use
  Company Number: None

PATIENT
  Age: 51 Year
  Sex: Female

DRUGS (1)
  1. FORTEO [Suspect]
     Active Substance: TERIPARATIDE
     Indication: OSTEOPOROSIS
     Dosage: ?          OTHER STRENGTH:250 MCG/ML;?
     Route: 058
     Dates: start: 20190330

REACTIONS (3)
  - Musculoskeletal discomfort [None]
  - Femur fracture [None]
  - Spinal fusion surgery [None]

NARRATIVE: CASE EVENT DATE: 20190501
